FAERS Safety Report 9065886 (Version 1)
Quarter: 2013Q1

REPORT INFORMATION
  Report Type: Other
  Country: AU (occurrence: AU)
  Receive Date: 20130214
  Receipt Date: 20130214
  Transmission Date: 20140127
  Serious: Yes (Death, Hospitalization)
  Sender: FDA-Public Use
  Company Number: AU-BRISTOL-MYERS SQUIBB COMPANY-17365511

PATIENT
  Age: 75 Year
  Sex: Female

DRUGS (1)
  1. METFORMIN HCL [Suspect]

REACTIONS (8)
  - Renal failure acute [Fatal]
  - Acute respiratory failure [Fatal]
  - Urinary tract infection [Unknown]
  - Clostridium difficile infection [Unknown]
  - Septic shock [Unknown]
  - Nosocomial infection [Unknown]
  - Pneumonia [Unknown]
  - Lactic acidosis [Unknown]
